FAERS Safety Report 9427611 (Version 1)
Quarter: 2013Q3

REPORT INFORMATION
  Report Type: Spontaneous
  Country: US (occurrence: None)
  Receive Date: 20130729
  Receipt Date: 20130729
  Transmission Date: 20140515
  Serious: Yes (Life-Threatening, Hospitalization)
  Sender: FDA-Public Use
  Company Number: None

PATIENT
  Age: 64 Year
  Sex: Female
  Weight: 78 kg

DRUGS (11)
  1. BACLOFEN [Suspect]
     Indication: MUSCLE SPASMS
     Dosage: 1/2 PILL FOR 6 DAYS THEN I PILL DAILY
     Route: 048
     Dates: start: 20130605, end: 20130620
  2. HYDRALAZINE [Concomitant]
  3. RENVELA [Concomitant]
  4. VITAMIN D [Concomitant]
  5. SENSIPAR [Concomitant]
  6. ALBUTEROL [Concomitant]
  7. PROCRIT [Concomitant]
  8. IRON [Concomitant]
  9. FISH OIL [Concomitant]
  10. ASPIRIN [Concomitant]
  11. VITAMINS [Concomitant]

REACTIONS (38)
  - Nausea [None]
  - Vomiting [None]
  - Dizziness [None]
  - Tremor [None]
  - Loss of consciousness [None]
  - Photopsia [None]
  - Headache [None]
  - Vision blurred [None]
  - Vertigo [None]
  - Cachexia [None]
  - Somnolence [None]
  - Asthenia [None]
  - Gait disturbance [None]
  - Dyspnoea [None]
  - Constipation [None]
  - Dysphagia [None]
  - Hyperhidrosis [None]
  - Confusional state [None]
  - Dysarthria [None]
  - Memory impairment [None]
  - Pharyngeal oedema [None]
  - Convulsion [None]
  - Nausea [None]
  - Somnolence [None]
  - Dialysis [None]
  - Body temperature decreased [None]
  - Hypotension [None]
  - Fatigue [None]
  - Activities of daily living impaired [None]
  - Loss of consciousness [None]
  - Palpitations [None]
  - Excessive eye blinking [None]
  - Paraesthesia [None]
  - Drooling [None]
  - Chills [None]
  - Pyrexia [None]
  - Lacrimation increased [None]
  - Drug withdrawal syndrome [None]
